FAERS Safety Report 5456527-7 (Version None)
Quarter: 2007Q3

REPORT INFORMATION
  Report Type: 
  Country: None (occurrence: None)
  Receive Date: 20070918
  Receipt Date: 20070911
  Transmission Date: 20080115
  Serious: Yes (Hospitalization)
  Sender: FDA-Public Use
  Company Number: A0671295A

PATIENT
  Age: 44 Year
  Sex: Female

DRUGS (5)
  1. COREG [Suspect]
     Indication: HYPERTENSION
     Dosage: 6.25MG TWICE PER DAY
     Route: 048
     Dates: start: 20061101
  2. HYZAAR [Concomitant]
  3. BIRTH CONTROL PILL [Concomitant]
  4. BLOOD PRESSURE MEDICATION [Concomitant]
     Indication: BLOOD PRESSURE
     Route: 065
  5. COREG CR [Concomitant]
     Indication: BLOOD PRESSURE
     Dosage: 20MG UNKNOWN
     Route: 048
     Dates: start: 20070101

REACTIONS (4)
  - CHEST PAIN [None]
  - INAPPROPRIATE SCHEDULE OF DRUG ADMINISTRATION [None]
  - PALPITATIONS [None]
  - TREATMENT NONCOMPLIANCE [None]
